FAERS Safety Report 9067264 (Version 2)
Quarter: 2013Q2

REPORT INFORMATION
  Report Type: Spontaneous
  Country: US (occurrence: US)
  Receive Date: 20130214
  Receipt Date: 20130429
  Transmission Date: 20140414
  Serious: Yes (Hospitalization)
  Sender: FDA-Public Use
  Company Number: PHHY2013US013434

PATIENT
  Age: 34 Year
  Sex: Male

DRUGS (6)
  1. PHENYTOIN [Suspect]
     Indication: PROPHYLAXIS
     Route: 048
  2. LISINOPRIL [Suspect]
     Dosage: 5 MG, DAILY
     Route: 048
  3. FOSPHENYTOIN [Concomitant]
  4. DEXAMETHASONE [Concomitant]
     Dosage: 4 MG, BID
     Route: 048
  5. DEXAMETHASONE [Concomitant]
     Dosage: 4 MG, QID
     Route: 048
  6. ACETAMINOPHEN [Concomitant]

REACTIONS (12)
  - Drug reaction with eosinophilia and systemic symptoms [Unknown]
  - Eosinophilia [Recovering/Resolving]
  - Rash pruritic [Recovering/Resolving]
  - Rash morbilliform [Recovering/Resolving]
  - Pyrexia [Recovered/Resolved]
  - Dysphagia [Recovering/Resolving]
  - Swollen tongue [Recovering/Resolving]
  - Erythema [Recovering/Resolving]
  - Angioedema [Recovered/Resolved]
  - Bronchial wall thickening [Recovering/Resolving]
  - Transaminases increased [Recovering/Resolving]
  - Lymphocytosis [Recovering/Resolving]
